FAERS Safety Report 7266321-2 (Version None)
Quarter: 2011Q1

REPORT INFORMATION
  Report Type: 
  Country: None (occurrence: None)
  Receive Date: 20110131
  Receipt Date: 20110127
  Transmission Date: 20110831
  Serious: Yes (Death, Other)
  Sender: FDA-Public Use
  Company Number: IN-PFIZER INC-2011020445

PATIENT
  Age: 59 Year
  Sex: Male

DRUGS (1)
  1. TYGACIL [Suspect]
     Dosage: 50 MG, 2X/DAY
     Route: 042
     Dates: start: 20110126, end: 20110127

REACTIONS (2)
  - CARDIAC DISORDER [None]
  - DEATH [None]
